FAERS Safety Report 9349370 (Version 5)
Quarter: 2013Q4

REPORT INFORMATION
  Report Type: Report from Study
  Country: JP (occurrence: JP)
  Receive Date: 20130614
  Receipt Date: 20131025
  Transmission Date: 20140711
  Serious: Yes (Hospitalization)
  Sender: FDA-Public Use
  Company Number: JP-BAYER-2013-073060

PATIENT
  Age: 66 Year
  Sex: Female
  Weight: 47 kg

DRUGS (6)
  1. STIVARGA [Suspect]
     Indication: COLON CANCER
     Dosage: DAILY DOSE 160 MG (160 MG/DAY ON FOR 11 DAYS)
     Route: 048
     Dates: start: 20130531, end: 20130610
  2. GASTER D [Concomitant]
     Indication: COLON CANCER
     Dosage: DAILY DOSE 40 MG
     Route: 048
  3. LAC B [Concomitant]
     Indication: COLON CANCER
     Dosage: DAILY DOSE 3000 MG
     Route: 048
  4. LENDORMIN [Concomitant]
     Dosage: DAILY DOSE .25 MG
     Route: 048
  5. HIRUDOID [Concomitant]
     Indication: DRUG TOXICITY PROPHYLAXIS
     Dosage: UNK
     Route: 061
     Dates: start: 20130531, end: 20130630
  6. NERISONA [Concomitant]
     Dosage: UNK
     Route: 061
     Dates: start: 2013

REACTIONS (6)
  - Erythema multiforme [Recovered/Resolved]
  - Blood pressure decreased [Recovered/Resolved]
  - Pyrexia [Recovered/Resolved]
  - Fibrin D dimer increased [Recovered/Resolved]
  - White blood cell count decreased [Recovered/Resolved]
  - Platelet count decreased [Recovered/Resolved]
